FAERS Safety Report 10095848 (Version 2)
Quarter: 2014Q2

REPORT INFORMATION
  Report Type: Spontaneous
  Country: US (occurrence: US)
  Receive Date: 20140422
  Receipt Date: 20140422
  Transmission Date: 20141212
  Serious: No
  Sender: FDA-Public Use
  Company Number: US-GILEAD-2013-0072566

PATIENT
  Age: 48 Year
  Sex: Female

DRUGS (3)
  1. LETAIRIS [Suspect]
     Indication: PULMONARY HYPERTENSION
     Dosage: 5 MG, QD
     Route: 048
     Dates: start: 20130303, end: 20130307
  2. LETAIRIS [Suspect]
     Indication: SICKLE CELL ANAEMIA
  3. LETAIRIS [Suspect]
     Indication: ANGIOPATHY

REACTIONS (1)
  - Hepatic enzyme increased [Unknown]
